FAERS Safety Report 4719916-1 (Version None)
Quarter: 2005Q3

REPORT INFORMATION
  Report Type: 
  Country: None (occurrence: None)
  Receive Date: 20050721
  Receipt Date: 20050120
  Transmission Date: 20060218
  Serious: No
  Sender: FDA-Public Use
  Company Number: US-GLAXOSMITHKLINE-A0541544A

PATIENT

DRUGS (2)
  1. AVANDIA [Suspect]
  2. NORVASC [Suspect]

REACTIONS (1)
  - OEDEMA [None]
